FAERS Safety Report 7419686-2 (Version None)
Quarter: 2011Q2

REPORT INFORMATION
  Report Type: 
  Country: None (occurrence: None)
  Receive Date: 20110418
  Receipt Date: 20110405
  Transmission Date: 20111010
  Serious: Yes (Other)
  Sender: FDA-Public Use
  Company Number: US-JNJFOC-20110403250

PATIENT
  Sex: Male
  Weight: 92.08 kg

DRUGS (3)
  1. DURAGESIC [Suspect]
     Indication: BACK PAIN
     Route: 062
  2. VICOPROFEN [Concomitant]
     Indication: BREAKTHROUGH PAIN
     Route: 048
  3. DURAGESIC [Suspect]
     Dosage: NDC#5045809305
     Route: 062

REACTIONS (4)
  - NIGHTMARE [None]
  - MYOCARDIAL INFARCTION [None]
  - EUPHORIC MOOD [None]
  - THERAPEUTIC RESPONSE UNEXPECTED [None]
